FAERS Safety Report 5692541-4 (Version None)
Quarter: 2008Q2

REPORT INFORMATION
  Report Type: 
  Country: None (occurrence: None)
  Receive Date: 20080328
  Receipt Date: 20080216
  Transmission Date: 20081010
  Serious: No
  Sender: FDA-Public Use
  Company Number: US-WYE-H02705908

PATIENT
  Age: 66 Year
  Sex: Female
  Weight: 65.83 kg

DRUGS (14)
  1. TORISEL [Suspect]
     Indication: RENAL CELL CARCINOMA
     Dosage: 25 MG 1X PER 1 WK, INTRAVENOUS
     Route: 042
     Dates: start: 20080207
  2. VIACTIV (CALCIUM CARBONATE) [Concomitant]
  3. ADVAIR DISKUS 100/50 [Concomitant]
  4. DURGESIC (FENTANYL) [Concomitant]
  5. LASIX [Concomitant]
  6. CLONIDINE [Concomitant]
  7. NORVASC [Concomitant]
  8. COUMADIN [Concomitant]
  9. VICODIN [Concomitant]
  10. FOLIC ACID [Concomitant]
  11. OMEPRAZOLE [Concomitant]
  12. PROAIR HFA [Concomitant]
  13. LORAZEPAM [Concomitant]
  14. COMBIVENT [Concomitant]

REACTIONS (1)
  - TONGUE BLACK HAIRY [None]
